FAERS Safety Report 12050962 (Version 2)
Quarter: 2016Q3

REPORT INFORMATION
  Report Type: Report from Study
  Country: CA (occurrence: CA)
  Receive Date: 20160209
  Receipt Date: 20160927
  Transmission Date: 20161109
  Serious: Yes (Life-Threatening, Other)
  Sender: FDA-Public Use
  Company Number: CA-ROCHE-ITM201503IM010945

PATIENT
  Age: 76 Year
  Sex: Male
  Weight: 117 kg

DRUGS (6)
  1. TAMSULOSIN [Concomitant]
     Active Substance: TAMSULOSIN
     Route: 065
  2. NIFEDIPINE XL [Concomitant]
     Active Substance: NIFEDIPINE
     Route: 065
  3. FUROSEMIDE. [Concomitant]
     Active Substance: FUROSEMIDE
     Route: 065
  4. TELMISARTAN. [Concomitant]
     Active Substance: TELMISARTAN
     Dosage: 80 MG
     Route: 065
  5. ESBRIET [Suspect]
     Active Substance: PIRFENIDONE
     Indication: IDIOPATHIC PULMONARY FIBROSIS
     Route: 048
     Dates: start: 20150109
  6. OXYGEN. [Concomitant]
     Active Substance: OXYGEN
     Dosage: 8 L/MIN
     Route: 065

REACTIONS (19)
  - Retching [Not Recovered/Not Resolved]
  - Pulmonary embolism [Unknown]
  - Lethargy [Not Recovered/Not Resolved]
  - Pleural disorder [Unknown]
  - Acquired diaphragmatic eventration [Unknown]
  - Trigeminal neuralgia [Unknown]
  - Dyspnoea [Not Recovered/Not Resolved]
  - Obesity [Unknown]
  - Insomnia [Not Recovered/Not Resolved]
  - General physical health deterioration [Not Recovered/Not Resolved]
  - Decreased appetite [Not Recovered/Not Resolved]
  - Oedema peripheral [Unknown]
  - Pulmonary function test decreased [Not Recovered/Not Resolved]
  - Benign prostatic hyperplasia [Unknown]
  - Weight decreased [Not Recovered/Not Resolved]
  - Cough [Not Recovered/Not Resolved]
  - Right ventricular enlargement [Unknown]
  - Hypertension [Unknown]
  - Nausea [Not Recovered/Not Resolved]

NARRATIVE: CASE EVENT DATE: 201502
